FAERS Safety Report 5896510-0 (Version None)
Quarter: 2008Q3

REPORT INFORMATION
  Report Type: 
  Country: None (occurrence: None)
  Receive Date: 20080924
  Receipt Date: 20070720
  Transmission Date: 20090109
  Serious: Yes (Other)
  Sender: FDA-Public Use
  Company Number: US-BAYER-200712013BWH

PATIENT
  Age: 42 Year
  Sex: Male

DRUGS (4)
  1. AVELOX [Suspect]
     Indication: SINUSITIS
     Dosage: TOTAL DAILY DOSE: 400 MG  UNIT DOSE: 400 MG
     Route: 048
     Dates: start: 20070401
  2. NASONEX [Concomitant]
  3. ASPIRIN [Concomitant]
  4. GLUCOSAMINE/CHONDROITIN [Concomitant]

REACTIONS (1)
  - TENDON RUPTURE [None]
